FAERS Safety Report 10670580 (Version 2)
Quarter: 2014Q4

REPORT INFORMATION
  Report Type: Report from Study
  Country: TH (occurrence: TH)
  Receive Date: 20141223
  Receipt Date: 20141223
  Transmission Date: 20150529
  Serious: No
  Sender: FDA-Public Use
  Company Number: PHHY2014TH005680

PATIENT
  Sex: Female
  Weight: 62 kg

DRUGS (1)
  1. TASIGNA [Suspect]
     Active Substance: NILOTINIB
     Dosage: FATHER EXPOSURE
     Route: 065

REACTIONS (2)
  - Exposure via father [Unknown]
  - Normal newborn [Unknown]
